FAERS Safety Report 8138164 (Version 4)
Quarter: 2012Q4

REPORT INFORMATION
  Report Type: 
  Country: US (occurrence: US)
  Receive Date: 20110915
  Receipt Date: 20120829
  Transmission Date: 20130627
  Serious: Yes (Hospitalization, Congenital Anomaly)
  Sender: FDA-Public Use
  Company Number: US-GLAXOSMITHKLINE-A0944606A

PATIENT
  Age: 0 Year
  Sex: Female
  Weight: 2.6 kg

DRUGS (2)
  1. PAXIL [Suspect]
     Indication: DEPRESSION
     Dosage: 20MG Per day
     Route: 064
     Dates: start: 200102, end: 200107
  2. PRENATAL VITAMINS [Concomitant]
     Route: 064

REACTIONS (4)
  - Skull malformation [Unknown]
  - Craniosynostosis [Unknown]
  - Developmental delay [Unknown]
  - Foetal exposure during pregnancy [Unknown]
